FAERS Safety Report 21368282 (Version 1)
Quarter: 2022Q3

REPORT INFORMATION
  Report Type: Spontaneous
  Country: AU (occurrence: AU)
  Receive Date: 20220923
  Receipt Date: 20220923
  Transmission Date: 20221026
  Serious: Yes (Other)
  Sender: FDA-Public Use
  Company Number: AU-BoehringerIngelheim-2022-BI-192730

PATIENT
  Age: 81 Year
  Sex: Male

DRUGS (1)
  1. GILOTRIF [Suspect]
     Active Substance: AFATINIB
     Indication: Lung neoplasm malignant

REACTIONS (3)
  - Lung carcinoma cell type unspecified recurrent [Unknown]
  - Product administration error [Unknown]
  - Coeliac disease [Unknown]

NARRATIVE: CASE EVENT DATE: 20220101
